FAERS Safety Report 5724315-X (Version None)
Quarter: 2008Q2

REPORT INFORMATION
  Report Type: 
  Country: None (occurrence: None)
  Receive Date: 20080430
  Receipt Date: 20080421
  Transmission Date: 20081010
  Serious: Yes (Other)
  Sender: FDA-Public Use
  Company Number: AU-PFIZER INC-2008024117

PATIENT
  Age: 64 Year
  Sex: Female

DRUGS (9)
  1. LIPITOR [Suspect]
  2. LASIX [Concomitant]
  3. VITAMIN E [Concomitant]
  4. OMEGA 3 [Concomitant]
  5. POTASSIUM CHLORIDE [Concomitant]
  6. MINIPRESS [Concomitant]
  7. VENTOLIN [Concomitant]
  8. FLUTICASONE PROPIONATE [Concomitant]
  9. VITAMIN D3 [Concomitant]

REACTIONS (12)
  - ABDOMINAL PAIN UPPER [None]
  - BLOOD CREATINE PHOSPHOKINASE INCREASED [None]
  - FALL [None]
  - FATIGUE [None]
  - HEADACHE [None]
  - HYPERSENSITIVITY [None]
  - INSOMNIA [None]
  - MIGRAINE [None]
  - MUSCULAR WEAKNESS [None]
  - MYALGIA [None]
  - PAIN IN EXTREMITY [None]
  - WRONG TECHNIQUE IN DRUG USAGE PROCESS [None]
